FAERS Safety Report 8582129-X (Version None)
Quarter: 2012Q3

REPORT INFORMATION
  Report Type: 
  Country: None (occurrence: None)
  Receive Date: 20120809
  Receipt Date: 20120731
  Transmission Date: 20120928
  Serious: Yes (Other)
  Sender: FDA-Public Use
  Company Number: US-ASTRAZENECA-2012SE07593

PATIENT
  Age: 56 Year
  Sex: Male

DRUGS (6)
  1. SEROQUEL [Suspect]
     Indication: BIPOLAR DISORDER
     Route: 048
     Dates: start: 20010101
  2. SEROQUEL [Suspect]
     Route: 048
     Dates: start: 20120601, end: 20120601
  3. SEROQUEL [Suspect]
     Route: 048
     Dates: start: 20010101
  4. SEROQUEL [Suspect]
     Dosage: GENERIC
     Route: 048
     Dates: start: 20120601
  5. TOPROL-XL [Suspect]
     Route: 048
  6. LAMICTAL [Concomitant]
     Indication: CONVULSION

REACTIONS (8)
  - SCHIZOPHRENIA [None]
  - DRUG EFFECT DECREASED [None]
  - BIPOLAR DISORDER [None]
  - INTENTIONAL DRUG MISUSE [None]
  - CONVULSION [None]
  - HEPATITIS B VIRUS TEST POSITIVE [None]
  - HEPATITIS C VIRUS TEST POSITIVE [None]
  - BODY TEMPERATURE INCREASED [None]
